FAERS Safety Report 7880799-2 (Version None)
Quarter: 2011Q4

REPORT INFORMATION
  Report Type: 
  Country: None (occurrence: None)
  Receive Date: 20111101
  Receipt Date: 20111026
  Transmission Date: 20120403
  Serious: Yes (Hospitalization)
  Sender: FDA-Public Use
  Company Number: SE-PFIZER INC-2011260511

PATIENT
  Age: 48 Year
  Sex: Female

DRUGS (3)
  1. FLUOXETINE [Concomitant]
     Dosage: UNK
  2. TREO [Suspect]
     Dosage: 500MG/50MG
     Route: 048
     Dates: end: 20110801
  3. LYRICA [Suspect]
     Indication: ANXIETY
     Dosage: 300MG/24H
     Dates: end: 20110801

REACTIONS (1)
  - INTERSTITIAL LUNG DISEASE [None]
